FAERS Safety Report 19092002 (Version 1)
Quarter: 2021Q2

REPORT INFORMATION
  Report Type: Other
  Country: ID (occurrence: ID)
  Receive Date: 20210405
  Receipt Date: 20210405
  Transmission Date: 20210717
  Serious: Yes (Hospitalization)
  Sender: FDA-Public Use
  Company Number: ID-ORCHID HEALTHCARE-2108884

PATIENT
  Age: 33 Year
  Sex: Male

DRUGS (2)
  1. CEFADROXIL. [Suspect]
     Active Substance: CEFADROXIL
     Route: 065
  2. IBUPROFEN. [Concomitant]
     Active Substance: IBUPROFEN
     Route: 065

REACTIONS (1)
  - Drug reaction with eosinophilia and systemic symptoms [Recovered/Resolved]
